FAERS Safety Report 9353677 (Version 1)
Quarter: 2013Q2

REPORT INFORMATION
  Report Type: Spontaneous
  Country: US (occurrence: US)
  Receive Date: 20130618
  Receipt Date: 20130618
  Transmission Date: 20140414
  Serious: Yes (Other)
  Sender: FDA-Public Use
  Company Number: US-BAYER-2013-074612

PATIENT
  Age: 57 Year
  Sex: Male

DRUGS (2)
  1. GADAVIST [Suspect]
     Indication: NUCLEAR MAGNETIC RESONANCE IMAGING BRAIN
     Dosage: 10 ML, ONCE
     Route: 042
     Dates: start: 20130614, end: 20130614
  2. GADAVIST [Suspect]
     Indication: VERTIGO

REACTIONS (4)
  - Hypotension [None]
  - Presyncope [None]
  - Urticaria [None]
  - Feeling hot [None]
